FAERS Safety Report 15368282 (Version 1)
Quarter: 2018Q3

REPORT INFORMATION
  Report Type: Spontaneous
  Country: CA (occurrence: CA)
  Receive Date: 20180910
  Receipt Date: 20180910
  Transmission Date: 20181010
  Serious: Yes (Death, Hospitalization)
  Sender: FDA-Public Use
  Company Number: CA-ACTELION-A-NJ2018-178223

PATIENT
  Age: 73 Year
  Sex: Female
  Weight: 47.17 kg

DRUGS (11)
  1. MACITENTAN [Concomitant]
     Active Substance: MACITENTAN
     Indication: PULMONARY HYPERTENSION
     Dosage: 10 MG, UNK
     Route: 048
     Dates: start: 20180101
  2. SILDENAFIL. [Concomitant]
     Active Substance: SILDENAFIL
     Indication: PULMONARY ARTERIAL HYPERTENSION
  3. FUROSEMIDE. [Concomitant]
     Active Substance: FUROSEMIDE
  4. WARFARIN [Concomitant]
     Active Substance: WARFARIN
  5. RABEPRAZOLE [Concomitant]
     Active Substance: RABEPRAZOLE
  6. CARIPUL [Suspect]
     Active Substance: EPOPROSTENOL
     Indication: PULMONARY HYPERTENSION
     Dosage: UNK NG, UNK
     Route: 042
     Dates: start: 20180313
  7. VITAMIN D [Concomitant]
     Active Substance: CHOLECALCIFEROL
  8. CALCIUM [Concomitant]
     Active Substance: CALCIUM
  9. MACITENTAN [Concomitant]
     Active Substance: MACITENTAN
     Indication: PULMONARY HYPERTENSION
     Dosage: 10 MG, UNK
     Route: 048
     Dates: start: 20180101
  10. SOTALOL. [Concomitant]
     Active Substance: SOTALOL
  11. OXYGEN. [Concomitant]
     Active Substance: OXYGEN
     Dosage: 4 ?5 L/MIN AT NIGHT

REACTIONS (1)
  - Sepsis [Fatal]
